FAERS Safety Report 9411393 (Version 2)
Quarter: 2013Q4

REPORT INFORMATION
  Report Type: Spontaneous
  Country: US (occurrence: US)
  Receive Date: 20130722
  Receipt Date: 20131113
  Transmission Date: 20140711
  Serious: Yes (Hospitalization)
  Sender: FDA-Public Use
  Company Number: PHHY2013US075353

PATIENT
  Age: 75 Year
  Sex: Male

DRUGS (10)
  1. WARFARIN [Suspect]
     Indication: ANTICOAGULANT THERAPY
     Dosage: 5 MG, QD
  2. WARFARIN [Suspect]
     Dosage: 5 MG, BID
  3. METOPROLOL [Concomitant]
  4. LISINOPRIL [Concomitant]
  5. HYDROCHLOROTHIAZIDE [Concomitant]
  6. DOXAZOSIN [Concomitant]
  7. DIGOXIN [Concomitant]
  8. SIMVASTATIN [Concomitant]
  9. CLOPIDOGREL [Concomitant]
  10. VITAMIN K [Concomitant]
     Dosage: 10 MG, UNK
     Route: 048

REACTIONS (9)
  - Compartment syndrome [Unknown]
  - Pain in extremity [Unknown]
  - Local swelling [Unknown]
  - Ecchymosis [Unknown]
  - Paraesthesia [Unknown]
  - Muscular weakness [Unknown]
  - Joint range of motion decreased [Unknown]
  - Muscle tightness [Unknown]
  - Myalgia [Unknown]
